FAERS Safety Report 8962645 (Version 9)
Quarter: 2013Q4

REPORT INFORMATION
  Report Type: Report from Study
  Country: JP (occurrence: JP)
  Receive Date: 20121214
  Receipt Date: 20131219
  Transmission Date: 20140711
  Serious: Yes (Hospitalization)
  Sender: FDA-Public Use
  Company Number: JP-UCBSA-072764

PATIENT
  Age: 56 Year
  Sex: Male
  Weight: 75.7 kg

DRUGS (12)
  1. CERTOLIZUMAB PEGOL [Suspect]
     Indication: RHEUMATOID ARTHRITIS
     Route: 058
     Dates: start: 20130703
  2. CERTOLIZUMAB PEGOL [Suspect]
     Indication: RHEUMATOID ARTHRITIS
     Route: 058
     Dates: start: 20121219, end: 20130620
  3. CERTOLIZUMAB PEGOL [Suspect]
     Indication: RHEUMATOID ARTHRITIS
     Route: 058
     Dates: start: 20121024, end: 20121122
  4. CERTOLIZUMAB PEGOL [Suspect]
     Indication: RHEUMATOID ARTHRITIS
     Route: 058
     Dates: start: 20120509, end: 201210
  5. FOLIC ACID [Suspect]
     Indication: PROPHYLAXIS
     Route: 048
     Dates: start: 20121204
  6. FAMOTIDINE [Suspect]
     Indication: GASTRITIS PROPHYLAXIS
     Route: 048
     Dates: start: 20130117
  7. BIFIDOBACTERIUM [Suspect]
     Indication: GASTROINTESTINAL DISORDER
     Route: 048
     Dates: start: 20120621
  8. LOXOPROFEN SODIUM [Suspect]
     Indication: RHEUMATOID ARTHRITIS
     Dosage: QS (AT HOUR OF SLEEP) PRN
     Route: 062
     Dates: start: 20120201
  9. METHOTREXATE [Concomitant]
     Indication: RHEUMATOID ARTHRITIS
     Route: 048
     Dates: start: 20130704
  10. METHOTREXATE [Concomitant]
     Indication: RHEUMATOID ARTHRITIS
     Route: 048
     Dates: start: 20130116, end: 20130620
  11. METHOTREXATE [Concomitant]
     Indication: RHEUMATOID ARTHRITIS
     Route: 048
     Dates: start: 20120510, end: 20121204
  12. OLOPATADINE HYDROCHLORIDE [Concomitant]
     Indication: SEASONAL ALLERGY
     Dosage: QS PRN
     Route: 047
     Dates: start: 2012

REACTIONS (2)
  - Macular fibrosis [Recovered/Resolved]
  - Cataract [Recovered/Resolved]
